FAERS Safety Report 9160863 (Version 1)
Quarter: 2013Q1

REPORT INFORMATION
  Report Type: Spontaneous
  Country: US (occurrence: US)
  Receive Date: 20130313
  Receipt Date: 20130313
  Transmission Date: 20140127
  Serious: No
  Sender: FDA-Public Use
  Company Number: US-BAYER-2013-031789

PATIENT
  Sex: Male
  Weight: 81.63 kg

DRUGS (2)
  1. ULTRAVIST [Suspect]
     Indication: MASS
     Dosage: 100 ML, ONCE
  2. ULTRAVIST [Suspect]
     Indication: COMPUTERISED TOMOGRAM THORAX

REACTIONS (1)
  - Urticaria [Recovered/Resolved]
